APPROVED DRUG PRODUCT: VITRAVENE PRESERVATIVE FREE
Active Ingredient: FOMIVIRSEN SODIUM
Strength: 6.6MG/ML
Dosage Form/Route: INJECTABLE;INJECTION
Application: N020961 | Product #001
Applicant: NOVARTIS PHARMACEUTICALS CORP
Approved: Aug 26, 1998 | RLD: No | RS: No | Type: DISCN